FAERS Safety Report 19812187 (Version 3)
Quarter: 2024Q3

REPORT INFORMATION
  Report Type: Report from Study
  Country: US (occurrence: US)
  Receive Date: 20210909
  Receipt Date: 20240920
  Transmission Date: 20241016
  Serious: Yes (Hospitalization, Other)
  Sender: KYOWA
  Company Number: US-KYOWAKIRIN-2021BKK015120

PATIENT

DRUGS (4)
  1. BUROSUMAB [Suspect]
     Active Substance: BUROSUMAB
     Indication: Hereditary hypophosphataemic rickets
     Dosage: 70 MG, 1X/4 WEEKS
     Route: 058
     Dates: start: 202002
  2. BUROSUMAB [Suspect]
     Active Substance: BUROSUMAB
     Dosage: 10 MG, 1X/4 WEEKS (STRENGTH 10 AND 30 MG/ML COMBINED TO ACHIEVE DOSE OF 70 MG, EVERY 4 WEEKS)
     Route: 058
     Dates: start: 20200118
  3. BUROSUMAB [Suspect]
     Active Substance: BUROSUMAB
     Indication: Hereditary hypophosphataemic rickets
     Dosage: 70 MG, 1X/4 WEEKS
     Route: 058
     Dates: start: 202002
  4. BUROSUMAB [Suspect]
     Active Substance: BUROSUMAB
     Dosage: 60 MG, 1X/4 WEEKS (STRENGTH 10 AND 30 MG/ML COMBINED TO ACHIEVE DOSE OF 70 MG, EVERY 4 WEEKS)
     Route: 058
     Dates: start: 20200118

REACTIONS (2)
  - Cholelithiasis [Unknown]
  - Spinal operation [Unknown]
